FAERS Safety Report 17561444 (Version 1)
Quarter: 2020Q1

REPORT INFORMATION
  Report Type: Spontaneous
  Country: US (occurrence: US)
  Receive Date: 20200312
  Receipt Date: 20200312
  Transmission Date: 20200409
  Serious: Yes (Hospitalization)
  Sender: FDA-Public Use
  Company Number: None

PATIENT
  Sex: Male

DRUGS (4)
  1. NORDITROPIN [Concomitant]
     Active Substance: SOMATROPIN
  2. PULMOZYME [Suspect]
     Active Substance: DORNASE ALFA
     Indication: CYSTIC FIBROSIS LUNG
     Route: 055
     Dates: start: 20140128
  3. GENTAMICIN. [Concomitant]
     Active Substance: GENTAMICIN
  4. MVW COMPLETE CHW [Concomitant]

REACTIONS (1)
  - Pulmonary function test decreased [None]
